FAERS Safety Report 5572869-9 (Version None)
Quarter: 2007Q4

REPORT INFORMATION
  Report Type: 
  Country: None (occurrence: None)
  Receive Date: 20071223
  Receipt Date: 20071220
  Transmission Date: 20080405
  Serious: Yes (Death, Hospitalization, Other)
  Sender: FDA-Public Use
  Company Number: PHBS2007BR21247

PATIENT
  Age: 87 Year
  Sex: Male
  Weight: 82 kg

DRUGS (3)
  1. NITRODERM [Suspect]
     Indication: ANGINA PECTORIS
     Dosage: 10 MG/DAY
     Route: 062
     Dates: end: 20071031
  2. ATENOLOL [Concomitant]
     Indication: HYPERTENSION
     Dosage: 1 TABLET/DAY
     Route: 048
  3. GINKGO BILOBA [Concomitant]
     Indication: MEMORY IMPAIRMENT
     Dosage: 1 TABLET/DAY
     Route: 048

REACTIONS (2)
  - INFARCTION [None]
  - PNEUMONIA [None]
